FAERS Safety Report 7873314-0 (Version None)
Quarter: 2011Q4

REPORT INFORMATION
  Report Type: 
  Country: None (occurrence: None)
  Receive Date: 20111030
  Receipt Date: 20110503
  Transmission Date: 20120403
  Serious: No
  Sender: FDA-Public Use
  Company Number: US-AMGEN-USASP2011022943

PATIENT
  Sex: Female

DRUGS (3)
  1. ENBREL [Suspect]
     Indication: PSORIASIS
     Dates: start: 20060101, end: 20100201
  2. ANTACID                            /00018101/ [Concomitant]
  3. PRENATAL VITAMINS                  /01549301/ [Concomitant]
     Route: 048

REACTIONS (2)
  - PSORIASIS [None]
  - INJECTION SITE PAIN [None]
